FAERS Safety Report 20455170 (Version 1)
Quarter: 2022Q1

REPORT INFORMATION
  Report Type: Spontaneous
  Country: US (occurrence: None)
  Receive Date: 20220210
  Receipt Date: 20220210
  Transmission Date: 20220423
  Serious: Yes (Death)
  Sender: FDA-Public Use
  Company Number: None

PATIENT
  Age: 80 Year
  Sex: Male

DRUGS (2)
  1. BARICITINIB [Suspect]
     Active Substance: BARICITINIB
     Indication: COVID-19
     Dosage: FREQUENCY : ONCE;?
     Route: 048
     Dates: start: 20211228, end: 20211228
  2. BARICITINIB [Suspect]
     Active Substance: BARICITINIB
     Dosage: FREQUENCY : DAILY;?
     Route: 048
     Dates: start: 20211229, end: 20211230

REACTIONS (1)
  - Cardiac arrest [None]

NARRATIVE: CASE EVENT DATE: 20220110
